FAERS Safety Report 11592551 (Version 2)
Quarter: 2016Q1

REPORT INFORMATION
  Report Type: Report from Study
  Country: US (occurrence: US)
  Receive Date: 20151005
  Receipt Date: 20160314
  Transmission Date: 20160525
  Serious: No
  Sender: FDA-Public Use
  Company Number: PHEH2015US019272

PATIENT
  Sex: Male

DRUGS (1)
  1. ENTRESTO [Suspect]
     Active Substance: SACUBITRIL\VALSARTAN
     Indication: CARDIAC FAILURE
     Route: 065
     Dates: start: 20150701

REACTIONS (3)
  - Peripheral swelling [Unknown]
  - Joint swelling [Recovering/Resolving]
  - Blood triglycerides abnormal [Unknown]
